FAERS Safety Report 21490122 (Version 2)
Quarter: 2022Q4

REPORT INFORMATION
  Report Type: Report from Study
  Country: CA (occurrence: CA)
  Receive Date: 20221021
  Receipt Date: 20221125
  Transmission Date: 20230113
  Serious: Yes (Hospitalization)
  Sender: FDA-Public Use
  Company Number: CA-JNJFOC-20221036011

PATIENT
  Age: 22 Year
  Sex: Male

DRUGS (2)
  1. STELARA [Suspect]
     Active Substance: USTEKINUMAB
     Indication: Crohn^s disease
     Dosage: EXPIRY DATE:01-MAR-2025
     Route: 058
     Dates: start: 20220824
  2. STELARA [Suspect]
     Active Substance: USTEKINUMAB
     Dosage: RE-INDUCTION WOULD BE REQUESTED FOR THE FIRST WEEK OF DEC-2022
     Route: 042

REACTIONS (3)
  - Rectal abscess [Unknown]
  - Crohn^s disease [Not Recovered/Not Resolved]
  - Abscess [Unknown]

NARRATIVE: CASE EVENT DATE: 20220101
